FAERS Safety Report 12486802 (Version 2)
Quarter: 2016Q2

REPORT INFORMATION
  Report Type: Spontaneous
  Country: US (occurrence: US)
  Receive Date: 20160621
  Receipt Date: 20160623
  Transmission Date: 20160815
  Serious: No
  Sender: FDA-Public Use
  Company Number: US-ALLERGAN-1653560US

PATIENT
  Sex: Female

DRUGS (2)
  1. LILETTA [Suspect]
     Active Substance: LEVONORGESTREL
     Indication: MENORRHAGIA
     Route: 015
  2. LILETTA [Suspect]
     Active Substance: LEVONORGESTREL
     Indication: PELVIC PAIN

REACTIONS (7)
  - Alopecia [Unknown]
  - Weight increased [Unknown]
  - Loss of libido [Unknown]
  - Dysmenorrhoea [Unknown]
  - Mood swings [Unknown]
  - Off label use [Unknown]
  - Drug ineffective for unapproved indication [Unknown]
